FAERS Safety Report 5660585-4 (Version None)
Quarter: 2008Q1

REPORT INFORMATION
  Report Type: 
  Country: None (occurrence: None)
  Receive Date: 20080311
  Receipt Date: 20071128
  Transmission Date: 20080703
  Serious: Yes (Other)
  Sender: FDA-Public Use
  Company Number: US-BAYER-200713878BCC

PATIENT
  Age: 63 Year
  Sex: Male
  Weight: 95 kg

DRUGS (9)
  1. ALEVE [Suspect]
     Indication: HERPES ZOSTER
     Dosage: TOTAL DAILY DOSE: 1320 MG  UNIT DOSE: 220 MG
     Route: 048
     Dates: start: 20071115, end: 20071126
  2. ALEVE [Suspect]
     Route: 048
  3. KIRKLAND ASPIRIN [Concomitant]
  4. ZETIA [Concomitant]
  5. CADUET [Concomitant]
  6. ALTACE [Concomitant]
  7. METFORMIN HCL [Concomitant]
  8. HYDROCHLOROTHIAZIDE [Concomitant]
  9. INSULIN [Concomitant]

REACTIONS (1)
  - BLOOD GLUCOSE INCREASED [None]
